FAERS Safety Report 17870289 (Version 2)
Quarter: 2020Q3

REPORT INFORMATION
  Report Type: Spontaneous
  Country: DE (occurrence: DE)
  Receive Date: 20200608
  Receipt Date: 20200818
  Transmission Date: 20201103
  Serious: Yes (Other)
  Sender: FDA-Public Use
  Company Number: DE-ROCHE-2584657

PATIENT
  Sex: Female
  Weight: 80 kg

DRUGS (7)
  1. BISOPROLOL [Concomitant]
     Active Substance: BISOPROLOL
  2. DOCETAXEL. [Concomitant]
     Active Substance: DOCETAXEL
  3. CANDESARTAN. [Concomitant]
     Active Substance: CANDESARTAN
     Dates: start: 202005
  4. INSULIN [Concomitant]
     Active Substance: INSULIN NOS
     Dates: start: 202004
  5. HERCEPTIN [Suspect]
     Active Substance: TRASTUZUMAB
     Indication: BREAST CANCER METASTATIC
     Route: 065
     Dates: start: 201507, end: 20200204
  6. RAMIPRIL. [Concomitant]
     Active Substance: RAMIPRIL
  7. PERJETA [Suspect]
     Active Substance: PERTUZUMAB
     Indication: BREAST CANCER METASTATIC
     Route: 065
     Dates: start: 201808, end: 202003

REACTIONS (3)
  - Drug-induced liver injury [Recovering/Resolving]
  - Hepatic fibrosis [Unknown]
  - Liver function test increased [Recovering/Resolving]

NARRATIVE: CASE EVENT DATE: 201912
